FAERS Safety Report 9735626 (Version 2)
Quarter: 2014Q1

REPORT INFORMATION
  Report Type: Report from Study
  Country: AR (occurrence: AR)
  Receive Date: 20131206
  Receipt Date: 20140106
  Transmission Date: 20141002
  Serious: Yes (Hospitalization)
  Sender: FDA-Public Use
  Company Number: PHHY2013AR140476

PATIENT
  Sex: Male

DRUGS (4)
  1. EXJADE [Suspect]
     Indication: IRON OVERLOAD
     Dosage: 3 DF, DAILY
     Route: 048
  2. EXJADE [Suspect]
     Dosage: 3 DF, DAILY
     Route: 048
     Dates: start: 20131124
  3. FOLIC ACID [Concomitant]
     Dosage: UNK UKN, UNK
  4. VITAMIN B12 [Concomitant]
     Dosage: UNK UKN, UNK

REACTIONS (3)
  - Aplastic anaemia [Recovering/Resolving]
  - Yellow skin [Recovering/Resolving]
  - Lip discolouration [Recovering/Resolving]
